FAERS Safety Report 7344493-9 (Version None)
Quarter: 2011Q1

REPORT INFORMATION
  Report Type: 
  Country: None (occurrence: None)
  Receive Date: 20110310
  Receipt Date: 20100125
  Transmission Date: 20110831
  Serious: No
  Sender: FDA-Public Use
  Company Number: US-BAYER-201012735NA

PATIENT
  Sex: Female
  Weight: 106.82 kg

DRUGS (1)
  1. MIRENA [Suspect]
     Dosage: 20 ?G/D, CONT
     Dates: start: 20081201

REACTIONS (9)
  - NAUSEA [None]
  - BREAST TENDERNESS [None]
  - IRRITABILITY [None]
  - ALOPECIA [None]
  - MIGRAINE [None]
  - ABDOMINAL PAIN [None]
  - CONGENITAL INFECTION [None]
  - WEIGHT INCREASED [None]
  - ACNE [None]
